FAERS Safety Report 4422176-2 (Version None)
Quarter: 2004Q3

REPORT INFORMATION
  Report Type: 
  Country: None (occurrence: None)
  Receive Date: 20040810
  Receipt Date: 20040419
  Transmission Date: 20050211
  Serious: Yes (Death)
  Sender: FDA-Public Use
  Company Number: AU-BRISTOL-MYERS SQUIBB COMPANY-12575585

PATIENT
  Age: 16 Year
  Sex: Male

DRUGS (5)
  1. ETOPOSIDE [Suspect]
     Indication: EWING'S SARCOMA
     Dates: start: 19910501, end: 19930201
  2. VINCRISTINE SULFATE [Suspect]
     Indication: EWING'S SARCOMA
     Dosage: DAYS 1 + 14
     Dates: start: 19910501, end: 19930201
  3. CYCLOPHOSPHAMIDE [Suspect]
     Indication: EWING'S SARCOMA
     Dosage: DAYS 1+14;5 MG/KG/CYCLE TO MAX 55 MG/KG/D (CYCLE 6) - DAYS 1, 2 + 3
     Dates: start: 19910501, end: 19930201
  4. MESNA [Concomitant]
  5. CO-TRIMOXAZOLE [Concomitant]
     Indication: PROPHYLAXIS

REACTIONS (1)
  - SEPSIS [None]
